FAERS Safety Report 17289076 (Version 1)
Quarter: 2020Q1

REPORT INFORMATION
  Report Type: Spontaneous
  Country: US (occurrence: US)
  Receive Date: 20200120
  Receipt Date: 20200120
  Transmission Date: 20200409
  Serious: Yes (Other)
  Sender: FDA-Public Use
  Company Number: US-MYLANLABS-2020M1005167

PATIENT
  Age: 7 Decade
  Sex: Female

DRUGS (9)
  1. LITHIUM. [Suspect]
     Active Substance: LITHIUM
     Indication: BIPOLAR II DISORDER
     Dosage: MAINTENANCE TREATMENT
     Route: 065
  2. MAPROTILINE [Concomitant]
     Active Substance: MAPROTILINE
     Indication: BIPOLAR II DISORDER
     Dosage: IN THE MORNING
     Route: 065
  3. NORTRIPTYLINE [Suspect]
     Active Substance: NORTRIPTYLINE
     Dosage: 100 MILLIGRAM
     Route: 065
     Dates: start: 201502
  4. NORTRIPTYLINE [Suspect]
     Active Substance: NORTRIPTYLINE
     Dosage: 50 MILLIGRAM
     Route: 065
     Dates: end: 201507
  5. PREDNISONE. [Suspect]
     Active Substance: PREDNISONE
     Indication: HYPERSENSITIVITY
     Route: 065
  6. LAMOTRIGINE. [Concomitant]
     Active Substance: LAMOTRIGINE
     Indication: BIPOLAR II DISORDER
     Route: 065
  7. LITHIUM. [Suspect]
     Active Substance: LITHIUM
     Dosage: 750 MILLIGRAM, QD
     Route: 065
  8. NORTRIPTYLINE [Suspect]
     Active Substance: NORTRIPTYLINE
     Indication: BIPOLAR II DISORDER
     Dosage: AT BEDTIME
     Route: 065
     Dates: start: 201410
  9. DIVALPROEX [Concomitant]
     Active Substance: DIVALPROEX SODIUM
     Indication: BIPOLAR II DISORDER
     Dosage: AT BEDTIME
     Route: 065
     Dates: start: 201509, end: 201605

REACTIONS (4)
  - Depressed mood [Unknown]
  - Hypothyroidism [Recovered/Resolved]
  - Condition aggravated [Recovered/Resolved]
  - Bipolar II disorder [Recovered/Resolved]
